FAERS Safety Report 24716527 (Version 1)
Quarter: 2024Q4

REPORT INFORMATION
  Report Type: Spontaneous
  Country: JP (occurrence: JP)
  Receive Date: 20241210
  Receipt Date: 20241210
  Transmission Date: 20250115
  Serious: Yes (Other)
  Sender: ACCORD
  Company Number: JP-MLMSERVICE-20241129-PI269627-00123-3

PATIENT
  Age: 70 Year
  Sex: Male

DRUGS (6)
  1. DOCETAXEL [Suspect]
     Active Substance: DOCETAXEL
     Indication: Metastases to lung
  2. RAMUCIRUMAB [Suspect]
     Active Substance: RAMUCIRUMAB
     Indication: Metastases to lung
  3. RAMUCIRUMAB [Suspect]
     Active Substance: RAMUCIRUMAB
     Indication: Lung carcinoma cell type unspecified recurrent
  4. DOCETAXEL [Suspect]
     Active Substance: DOCETAXEL
     Indication: Malignant neoplasm progression
  5. RAMUCIRUMAB [Suspect]
     Active Substance: RAMUCIRUMAB
     Indication: Malignant neoplasm progression
  6. DOCETAXEL [Suspect]
     Active Substance: DOCETAXEL
     Indication: Lung carcinoma cell type unspecified recurrent

REACTIONS (2)
  - Drug-induced liver injury [Recovering/Resolving]
  - Interstitial lung disease [Recovering/Resolving]
